FAERS Safety Report 10086253 (Version 1)
Quarter: 2014Q2

REPORT INFORMATION
  Report Type: Spontaneous
  Country: US (occurrence: None)
  Receive Date: 20140417
  Receipt Date: 20140417
  Transmission Date: 20141212
  Serious: Yes (Other)
  Sender: FDA-Public Use
  Company Number: None

PATIENT
  Age: 69 Year
  Sex: Male
  Weight: 116.12 kg

DRUGS (9)
  1. ELIQUIS [Suspect]
     Indication: ATRIAL FIBRILLATION
     Dosage: ONCE TAB
     Route: 048
     Dates: start: 20140315
  2. CRESTOR [Concomitant]
  3. LISINOPRIL [Concomitant]
  4. HYDROCHLOROTHIAZIDE [Concomitant]
  5. METOPROLOL SUCCINATE [Concomitant]
  6. MONTELUKAST [Concomitant]
  7. NEXIUM [Concomitant]
  8. SERTRALINE [Concomitant]
  9. ULORIC [Concomitant]

REACTIONS (1)
  - Arthralgia [None]
